FAERS Safety Report 6233832-8 (Version None)
Quarter: 2009Q2

REPORT INFORMATION
  Report Type: 
  Country: None (occurrence: None)
  Receive Date: 20090618
  Receipt Date: 20090304
  Transmission Date: 20091009
  Serious: No
  Sender: FDA-Public Use
  Company Number: A0771547A

PATIENT

DRUGS (2)
  1. PROMACTA [Suspect]
  2. CORTICOSTEROID [Suspect]

REACTIONS (1)
  - PLATELET COUNT INCREASED [None]
